FAERS Safety Report 7020964-X (Version None)
Quarter: 2010Q3

REPORT INFORMATION
  Report Type: 
  Country: None (occurrence: None)
  Receive Date: 20100929
  Receipt Date: 20100223
  Transmission Date: 20110219
  Serious: No
  Sender: FDA-Public Use
  Company Number: A0845964A

PATIENT
  Age: 43 Year
  Sex: Female

DRUGS (4)
  1. RELENZA [Suspect]
     Indication: INFLUENZA
     Dosage: 10MG TWICE PER DAY
     Route: 055
     Dates: start: 20100223
  2. PRILOSEC [Concomitant]
  3. OSCILLOCOCCINUM [Concomitant]
  4. ELDERBERRY [Concomitant]

REACTIONS (2)
  - CHEST DISCOMFORT [None]
  - COUGH [None]
